FAERS Safety Report 9601099 (Version 2)
Quarter: 2013Q4

REPORT INFORMATION
  Report Type: Spontaneous
  Country: US (occurrence: US)
  Receive Date: 20131004
  Receipt Date: 20131004
  Transmission Date: 20140711
  Serious: Yes (Other)
  Sender: FDA-Public Use
  Company Number: US-AMGEN-USASP2013034777

PATIENT
  Age: 57 Year
  Sex: Female
  Weight: 81.63 kg

DRUGS (3)
  1. ENBREL [Suspect]
     Indication: ANKYLOSING SPONDYLITIS
     Dosage: 50 MG, QWK
     Route: 058
     Dates: start: 20130202
  2. FLEXERIL                           /00428402/ [Concomitant]
     Indication: MUSCLE SPASMS
     Dosage: 10 G, TID PRN
     Route: 048
     Dates: start: 2010
  3. LIOD                               /00033601/ [Concomitant]
     Indication: COLITIS
     Dosage: 1-2 GM 4D
     Route: 048
     Dates: start: 20120817

REACTIONS (4)
  - Colitis ulcerative [Recovered/Resolved]
  - Pain [Not Recovered/Not Resolved]
  - Arthritis [Not Recovered/Not Resolved]
  - Injection site bruising [Recovered/Resolved]
